FAERS Safety Report 16371493 (Version 3)
Quarter: 2021Q1

REPORT INFORMATION
  Report Type: Spontaneous
  Country: US (occurrence: US)
  Receive Date: 20190530
  Receipt Date: 20210203
  Transmission Date: 20210419
  Serious: No
  Sender: FDA-Public Use
  Company Number: US-PFIZER INC-2019230569

PATIENT
  Age: 72 Year
  Sex: Female
  Weight: 65.76 kg

DRUGS (1)
  1. METHOTREXATE SODIUM. [Suspect]
     Active Substance: METHOTREXATE SODIUM
     Indication: RHEUMATOID ARTHRITIS
     Dosage: 0.4 MG, WEEKLY (0.4MG INJECTABLE ONCE A WEEK)
     Dates: start: 20190404, end: 20190504

REACTIONS (3)
  - Drug ineffective [Unknown]
  - Drug hypersensitivity [Unknown]
  - Dizziness [Unknown]
